FAERS Safety Report 9511250 (Version 1)
Quarter: 2013Q3

REPORT INFORMATION
  Report Type: Spontaneous
  Country: US (occurrence: US)
  Receive Date: 20130910
  Receipt Date: 20130910
  Transmission Date: 20140515
  Serious: Yes (Other)
  Sender: FDA-Public Use
  Company Number: US-JNJFOC-20130817539

PATIENT
  Age: 69 Year
  Sex: Female
  Weight: 90.72 kg

DRUGS (4)
  1. XARELTO [Suspect]
     Indication: THROMBOSIS PROPHYLAXIS
     Route: 048
     Dates: start: 20130812
  2. XARELTO [Suspect]
     Indication: HIP ARTHROPLASTY
     Route: 048
     Dates: start: 20130812
  3. VICODIN [Concomitant]
     Indication: PROCEDURAL PAIN
     Dosage: 325/10MG
     Route: 048
     Dates: start: 201103
  4. VICODIN [Concomitant]
     Indication: ARTHRALGIA
     Dosage: 325/10MG
     Route: 048
     Dates: start: 201103

REACTIONS (3)
  - Stupor [Recovered/Resolved]
  - Blood urine present [Recovered/Resolved]
  - Stress [Not Recovered/Not Resolved]
